FAERS Safety Report 5362263-8 (Version None)
Quarter: 2007Q2

REPORT INFORMATION
  Report Type: 
  Country: None (occurrence: None)
  Receive Date: 20070619
  Receipt Date: 20070607
  Transmission Date: 20071010
  Serious: Yes (Other)
  Sender: FDA-Public Use
  Company Number: TW-ELI_LILLY_AND_COMPANY-TW200706003505

PATIENT
  Age: 17 Year
  Sex: Female

DRUGS (1)
  1. HUMATROPE [Suspect]

REACTIONS (3)
  - CHONDROLYSIS [None]
  - EPIPHYSIOLYSIS [None]
  - OSTEONECROSIS [None]
